FAERS Safety Report 14539887 (Version 2)
Quarter: 2018Q1

REPORT INFORMATION
  Report Type: Report from Study
  Country: PY (occurrence: PY)
  Receive Date: 20180216
  Receipt Date: 20180309
  Transmission Date: 20180509
  Serious: Yes (Death, Hospitalization)
  Sender: FDA-Public Use
  Company Number: PHHY2018PY026734

PATIENT
  Sex: Male

DRUGS (1)
  1. GLIVEC [Suspect]
     Active Substance: IMATINIB MESYLATE
     Indication: CHRONIC MYELOID LEUKAEMIA
     Dosage: 400 MG, QD
     Route: 065
     Dates: start: 20050906

REACTIONS (7)
  - Pyrexia [Fatal]
  - Urinary tract infection [Fatal]
  - Dysuria [Fatal]
  - Pyelonephritis [Fatal]
  - Sepsis [Fatal]
  - Nausea [Fatal]
  - Shock [Fatal]
